FAERS Safety Report 7116165-7 (Version None)
Quarter: 2010Q4

REPORT INFORMATION
  Report Type: 
  Country: None (occurrence: None)
  Receive Date: 20101122
  Receipt Date: 20101110
  Transmission Date: 20110411
  Serious: Yes (Hospitalization)
  Sender: FDA-Public Use
  Company Number: PHHY2010ZA52902

PATIENT
  Age: 63 Year
  Sex: Female

DRUGS (3)
  1. FEMARA [Suspect]
     Dosage: UNK
     Dates: start: 20090801
  2. ELTROXIN [Concomitant]
     Dosage: UNK
  3. DRUG THERAPY NOS [Concomitant]
     Indication: BLOOD PRESSURE ABNORMAL

REACTIONS (8)
  - ALOPECIA [None]
  - BRONCHITIS [None]
  - DEPRESSION [None]
  - FEELING ABNORMAL [None]
  - HEADACHE [None]
  - HOT FLUSH [None]
  - MALAISE [None]
  - NAUSEA [None]
